FAERS Safety Report 11852843 (Version 1)
Quarter: 2015Q4

REPORT INFORMATION
  Report Type: Spontaneous
  Country: FR (occurrence: FR)
  Receive Date: 20151218
  Receipt Date: 20151218
  Transmission Date: 20160305
  Serious: Yes (Hospitalization)
  Sender: FDA-Public Use
  Company Number: FR-CELGENE-FRA-2015121540

PATIENT
  Age: 89 Year
  Sex: Female

DRUGS (10)
  1. NEODEX [Suspect]
     Active Substance: DEXAMETHASONE\NEOMYCIN
     Indication: PLASMA CELL MYELOMA
     Route: 048
     Dates: start: 20150611, end: 20150619
  2. PREVISCAN [Concomitant]
     Active Substance: FLUINDIONE
     Indication: PRODUCT USED FOR UNKNOWN INDICATION
     Route: 048
     Dates: end: 20150608
  3. NEODEX [Suspect]
     Active Substance: DEXAMETHASONE\NEOMYCIN
     Route: 048
     Dates: start: 20150625, end: 20150629
  4. CORTANCYL [Concomitant]
     Active Substance: PREDNISONE
     Indication: PRODUCT USED FOR UNKNOWN INDICATION
     Dosage: 3 TABS IN THE MORNING FOR 4 DAYS THEN 2 TABS IN THE MORNING FOR 4 DAYS THEN 1 TAB FOR 4 DAYS
     Route: 048
     Dates: end: 20150608
  5. OXYCONTIN [Concomitant]
     Active Substance: OXYCODONE HYDROCHLORIDE
     Indication: PRODUCT USED FOR UNKNOWN INDICATION
     Route: 048
     Dates: start: 20150612
  6. AREDIA [Concomitant]
     Active Substance: PAMIDRONATE DISODIUM
     Indication: BLOOD CALCIUM
     Route: 041
     Dates: start: 20150604, end: 20150604
  7. PREVISCAN [Concomitant]
     Active Substance: FLUINDIONE
     Dosage: 30 MILLIGRAM
     Route: 048
     Dates: start: 20150612
  8. REVLIMID [Suspect]
     Active Substance: LENALIDOMIDE
     Indication: PLASMA CELL MYELOMA
     Dosage: 10 MILLIGRAM
     Route: 048
     Dates: start: 20150611, end: 20150619
  9. CLAMOXYL [Suspect]
     Active Substance: AMOXICILLIN\CLAVULANIC ACID
     Indication: INFECTION PROPHYLAXIS
     Route: 048
     Dates: start: 20150712, end: 20150712
  10. LANSOPRAZOLE. [Concomitant]
     Active Substance: LANSOPRAZOLE
     Indication: PRODUCT USED FOR UNKNOWN INDICATION
     Route: 065

REACTIONS (3)
  - Fungal infection [Recovered/Resolved]
  - Gastric haemorrhage [Unknown]
  - Aplasia [Unknown]

NARRATIVE: CASE EVENT DATE: 20150617
